FAERS Safety Report 21871255 (Version 5)
Quarter: 2024Q2

REPORT INFORMATION
  Report Type: Spontaneous
  Country: JP (occurrence: JP)
  Receive Date: 20230117
  Receipt Date: 20240621
  Transmission Date: 20240716
  Serious: Yes (Death, Hospitalization, Other)
  Sender: FDA-Public Use
  Company Number: JP-ABBVIE-4215194

PATIENT
  Age: 78 Year
  Sex: Male
  Weight: 77 kg

DRUGS (8)
  1. VENCLEXTA [Suspect]
     Active Substance: VENETOCLAX
     Indication: Blastic plasmacytoid dendritic cell neoplasia
     Dosage: 50 MG
     Route: 048
     Dates: start: 20220930, end: 20220930
  2. FLUCONAZOLE [Concomitant]
     Active Substance: FLUCONAZOLE
     Indication: Infection prophylaxis
     Dosage: 200 MG
     Route: 048
     Dates: start: 20220928, end: 20220930
  3. SULFAMETHOXAZOLE AND TRIMETHOPRIM [Concomitant]
     Active Substance: SULFAMETHOXAZOLE\TRIMETHOPRIM
     Indication: Infection prophylaxis
     Dosage: 1 TABLET
     Route: 048
     Dates: start: 20220928, end: 20220930
  4. RAMOSETRON HYDROCHLORIDE [Concomitant]
     Active Substance: RAMOSETRON HYDROCHLORIDE
     Indication: Prophylaxis of nausea and vomiting
     Dosage: 0.1 MG
     Route: 048
     Dates: start: 20220930, end: 20220930
  5. ISOTONIC SODIUM CHLORIDE SOLUTION [Concomitant]
     Active Substance: SODIUM CHLORIDE
     Indication: Product used for unknown indication
     Dosage: 2000 ML
     Dates: start: 20220930
  6. VIDAZA [Suspect]
     Active Substance: AZACITIDINE
     Indication: Blastic plasmacytoid dendritic cell neoplasia
     Dosage: 140 MG
     Route: 058
     Dates: start: 20220930, end: 20220930
  7. ESOMEPRAZOLE [Concomitant]
     Active Substance: ESOMEPRAZOLE
     Indication: Gastritis prophylaxis
     Dosage: 20 MG?ESOMEPRAZOLE MAGNESIUM HYDRATE
     Route: 048
     Dates: start: 20220929, end: 20220930
  8. FEBUXOSTAT [Concomitant]
     Active Substance: FEBUXOSTAT
     Indication: Prophylaxis
     Dosage: 20 MILLIGRAM
     Route: 048
     Dates: start: 20220929, end: 20220930

REACTIONS (4)
  - Tumour lysis syndrome [Fatal]
  - Dialysis [Unknown]
  - Blastic plasmacytoid dendritic cell neoplasia [Fatal]
  - Off label use [Unknown]

NARRATIVE: CASE EVENT DATE: 20220930
